FAERS Safety Report 15229741 (Version 1)
Quarter: 2018Q3

REPORT INFORMATION
  Report Type: Spontaneous
  Country: US (occurrence: US)
  Receive Date: 20180802
  Receipt Date: 20180802
  Transmission Date: 20181010
  Serious: Yes (Other)
  Sender: FDA-Public Use
  Company Number: US-ACCORD-061795

PATIENT
  Age: 52 Year
  Sex: Female
  Weight: 54.43 kg

DRUGS (14)
  1. DOCETAXEL ACCORD [Suspect]
     Active Substance: DOCETAXEL
     Indication: INVASIVE DUCTAL BREAST CARCINOMA
     Dosage: TCH?P 4?6 CYCLES CYCLES EVERY THREE WEEKS
     Route: 042
     Dates: start: 20150116, end: 20150409
  2. KYTRIL [Concomitant]
     Active Substance: GRANISETRON HYDROCHLORIDE
     Route: 042
     Dates: start: 20150212
  3. HERCEPTIN [Suspect]
     Active Substance: TRASTUZUMAB
     Indication: INVASIVE DUCTAL BREAST CARCINOMA
     Dosage: TCH?P 4?6  CYCLES EVERY THREE WEEKS
     Route: 042
     Dates: start: 20150116, end: 20151218
  4. DEXAMETHASONE. [Concomitant]
     Active Substance: DEXAMETHASONE
     Route: 042
     Dates: start: 20150116
  5. PERJETA [Suspect]
     Active Substance: PERTUZUMAB
     Indication: INVASIVE DUCTAL BREAST CARCINOMA
     Dosage: TCH?P 4?6  CYCLES?EVERY THREE WEEKS
     Route: 042
     Dates: start: 20150116, end: 20150409
  6. ALOXI [Concomitant]
     Active Substance: PALONOSETRON HYDROCHLORIDE
     Route: 042
     Dates: start: 20150116
  7. ZESTORETIC [Concomitant]
     Active Substance: HYDROCHLOROTHIAZIDE\LISINOPRIL
     Dosage: TAKE 1 TABLET BY MOUTH DAILY.?10?12.5 MG PER TABLET
     Dates: end: 20150518
  8. EMEND [Concomitant]
     Active Substance: APREPITANT
     Route: 042
     Dates: start: 20150116
  9. BIOTIN [Concomitant]
     Active Substance: BIOTIN
     Dosage: TAKE 1 TABLET BY MOUTH DAILY
     Route: 048
     Dates: end: 20150518
  10. NEULASTA [Concomitant]
     Active Substance: PEGFILGRASTIM
     Route: 058
     Dates: start: 20150119
  11. CARBOPLATIN. [Suspect]
     Active Substance: CARBOPLATIN
     Indication: INVASIVE DUCTAL BREAST CARCINOMA
     Dosage: TCH?P 4?6  CYCLES EVERY THREE WEEKS
     Route: 042
     Dates: start: 20150116, end: 20150409
  12. BENADRYL [Concomitant]
     Active Substance: DIPHENHYDRAMINE HYDROCHLORIDE
     Route: 042
     Dates: start: 20150116
  13. LISINOPRIL. [Concomitant]
     Active Substance: LISINOPRIL
     Indication: HYPERTENSION
     Dosage: DOSE: 10 TO 12.5 MG ?2013 TO PRESENT
     Dates: start: 2013
  14. PRINZID [Concomitant]
     Dosage: TAKE 1 TABLET BY MOUTH DAILY?12.5 MG PER TABLET
     Dates: end: 20150518

REACTIONS (1)
  - Alopecia [Not Recovered/Not Resolved]

NARRATIVE: CASE EVENT DATE: 20151009
